FAERS Safety Report 7629365-4 (Version None)
Quarter: 2011Q3

REPORT INFORMATION
  Report Type: 
  Country: None (occurrence: None)
  Receive Date: 20110722
  Receipt Date: 20110715
  Transmission Date: 20111222
  Serious: Yes (Hospitalization)
  Sender: FDA-Public Use
  Company Number: US-JNJFOC-20110706952

PATIENT
  Age: 46 Year
  Sex: Male

DRUGS (9)
  1. PROPRANOLOL [Suspect]
     Indication: MULTIPLE DRUG OVERDOSE
     Route: 065
  2. ETHANOL [Suspect]
     Indication: MULTIPLE DRUG OVERDOSE
     Route: 065
  3. ULTRAM [Suspect]
     Indication: MULTIPLE DRUG OVERDOSE
     Route: 065
  4. BENZODIAZEPINE NOS [Suspect]
     Indication: MULTIPLE DRUG OVERDOSE
     Route: 065
  5. HYDROXYZINE HCL [Suspect]
     Indication: MULTIPLE DRUG OVERDOSE
     Route: 065
  6. ACYCLOVIR [Suspect]
     Indication: MULTIPLE DRUG OVERDOSE
     Route: 065
  7. NIFEDIPINE [Suspect]
     Indication: MULTIPLE DRUG OVERDOSE
     Route: 065
  8. CLONIDINE [Suspect]
     Indication: MULTIPLE DRUG OVERDOSE
     Route: 065
  9. PENICILLIN [Suspect]
     Indication: MULTIPLE DRUG OVERDOSE
     Route: 065

REACTIONS (4)
  - INTENTIONAL SELF-INJURY [None]
  - HYPOTENSION [None]
  - MULTIPLE DRUG OVERDOSE [None]
  - APNOEA [None]
